FAERS Safety Report 17728056 (Version 1)
Quarter: 2020Q2

REPORT INFORMATION
  Report Type: Spontaneous
  Country: US (occurrence: US)
  Receive Date: 20200430
  Receipt Date: 20200430
  Transmission Date: 20200714
  Serious: Yes (Hospitalization, Other)
  Sender: FDA-Public Use
  Company Number: US-009507513-2004USA008126

PATIENT
  Age: 68 Year
  Sex: Female

DRUGS (8)
  1. OMEPRAZOLE. [Concomitant]
     Active Substance: OMEPRAZOLE
  2. ZOLEDRONIC ACID [Concomitant]
     Active Substance: ZOLEDRONIC ACID
     Dosage: UNK, ONCE A YEAR
  3. INTRON A [Suspect]
     Active Substance: INTERFERON ALFA-2B
     Indication: SYSTEMIC MASTOCYTOSIS
     Dosage: 1 MILLION IU 3 TIMES PER WEEK
     Route: 058
     Dates: start: 2010
  4. INTRON A [Suspect]
     Active Substance: INTERFERON ALFA-2B
     Dosage: 1MILLION IU 3 TIMES PER WEEK
     Route: 058
     Dates: start: 20200313
  5. SINGULAIR [Concomitant]
     Active Substance: MONTELUKAST SODIUM
  6. CETIRIZINE HYDROCHLORIDE. [Concomitant]
     Active Substance: CETIRIZINE HYDROCHLORIDE
  7. INTRON A [Suspect]
     Active Substance: INTERFERON ALFA-2B
     Dosage: 1 MILLION IU 3 TIMES PER WEEK
     Route: 058
     Dates: end: 2020
  8. LAMOTRIGINE. [Concomitant]
     Active Substance: LAMOTRIGINE

REACTIONS (5)
  - Blood magnesium decreased [Recovered/Resolved]
  - Product use in unapproved indication [Unknown]
  - Generalised tonic-clonic seizure [Recovered/Resolved]
  - Malignant hypertension [Recovered/Resolved]
  - Hip arthroplasty [Recovered/Resolved]

NARRATIVE: CASE EVENT DATE: 2010
